FAERS Safety Report 7145220-0 (Version None)
Quarter: 2010Q4

REPORT INFORMATION
  Report Type: 
  Country: None (occurrence: None)
  Receive Date: 20101208
  Receipt Date: 20101130
  Transmission Date: 20110411
  Serious: Yes (Hospitalization, Other)
  Sender: FDA-Public Use
  Company Number: US-PFIZER INC-2010161654

PATIENT
  Age: 25 Year
  Sex: Female

DRUGS (1)
  1. GEODON [Suspect]
     Dosage: 40 MG OR 60 MG

REACTIONS (1)
  - ARRHYTHMIA [None]
